FAERS Safety Report 19775362 (Version 3)
Quarter: 2021Q3

REPORT INFORMATION
  Report Type: Other
  Country: DE (occurrence: DE)
  Receive Date: 20210902
  Receipt Date: 20210929
  Transmission Date: 20211014
  Serious: No
  Sender: FDA-Public Use
  Company Number: DE-ROCHE-2891440

PATIENT
  Age: 43 Year
  Sex: Female

DRUGS (9)
  1. OMEGA 3 [Concomitant]
     Active Substance: OMEGA-3 FATTY ACIDS
  2. OCREVUS [Suspect]
     Active Substance: OCRELIZUMAB
     Route: 042
     Dates: start: 20210812, end: 2021
  3. OCREVUS [Suspect]
     Active Substance: OCRELIZUMAB
     Indication: MULTIPLE SCLEROSIS
     Route: 042
     Dates: start: 20210727
  4. MIRTAZAPINE. [Concomitant]
     Active Substance: MIRTAZAPINE
  5. OCREVUS [Suspect]
     Active Substance: OCRELIZUMAB
     Route: 042
     Dates: start: 2021
  6. CORTISONE [Concomitant]
     Active Substance: CORTISONE
     Indication: PREMEDICATION
  7. FLU VACCINE [Concomitant]
     Active Substance: INFLUENZA VIRUS VACCINE
     Indication: ANTIVIRAL PROPHYLAXIS
  8. MAGNESIUM [Concomitant]
     Active Substance: MAGNESIUM
  9. CALCIUM [Concomitant]
     Active Substance: CALCIUM

REACTIONS (5)
  - Throat irritation [Not Recovered/Not Resolved]
  - Cough [Recovered/Resolved]
  - Herpes zoster [Recovered/Resolved]
  - Dizziness [Recovering/Resolving]
  - Heart rate increased [Recovered/Resolved]

NARRATIVE: CASE EVENT DATE: 20210729
